FAERS Safety Report 17467803 (Version 1)
Quarter: 2020Q1

REPORT INFORMATION
  Report Type: Spontaneous
  Country: US (occurrence: US)
  Receive Date: 20200226
  Receipt Date: 20200226
  Transmission Date: 20200409
  Serious: Yes (Other)
  Sender: FDA-Public Use
  Company Number: None

PATIENT
  Age: 68 Year
  Sex: Female
  Weight: 58.06 kg

DRUGS (2)
  1. JETREA [Suspect]
     Active Substance: OCRIPLASMIN
     Dates: start: 20200127, end: 20200127
  2. JETREA [Concomitant]
     Active Substance: OCRIPLASMIN
     Dates: start: 20200127, end: 20200127

REACTIONS (1)
  - Visual impairment [None]

NARRATIVE: CASE EVENT DATE: 20200127
